FAERS Safety Report 12433369 (Version 1)
Quarter: 2016Q2

REPORT INFORMATION
  Report Type: Report from Study
  Country: US (occurrence: US)
  Receive Date: 20160603
  Receipt Date: 20160603
  Transmission Date: 20160815
  Serious: No
  Sender: FDA-Public Use
  Company Number: GXBR2016US001189

PATIENT
  Age: 16 Year
  Sex: Male
  Weight: 56.3 kg

DRUGS (1)
  1. SOMATROPIN [Suspect]
     Active Substance: SOMATROPIN
     Indication: GROWTH HORMONE DEFICIENCY
     Dosage: 0.044 MG/KG, QD
     Route: 058
     Dates: start: 20131023

REACTIONS (2)
  - Incorrect dose administered [Recovered/Resolved]
  - Cerebral disorder [Recovered/Resolved with Sequelae]

NARRATIVE: CASE EVENT DATE: 20160509
